FAERS Safety Report 7118849-3 (Version None)
Quarter: 2010Q4

REPORT INFORMATION
  Report Type: 
  Country: None (occurrence: None)
  Receive Date: 20101123
  Receipt Date: 20101004
  Transmission Date: 20110411
  Serious: No
  Sender: FDA-Public Use
  Company Number: US-KINGPHARMUSA00001-K201001236

PATIENT
  Age: 48 Year
  Sex: Male
  Weight: 134.69 kg

DRUGS (8)
  1. FLECTOR [Suspect]
     Indication: BACK PAIN
     Dosage: 1 PATCH, PRN
     Route: 061
     Dates: start: 20100601
  2. FLECTOR [Suspect]
     Indication: MUSCULOSKELETAL PAIN
  3. COREG [Concomitant]
     Indication: HYPERTENSION
  4. LISINOPRIL [Concomitant]
     Indication: HYPERTENSION
  5. DIURETICS [Concomitant]
  6. TRAMADOL HCL [Concomitant]
  7. VICODIN [Concomitant]
  8. VALIUM [Concomitant]

REACTIONS (1)
  - HAEMOGLOBIN DECREASED [None]
